FAERS Safety Report 9400025 (Version 1)
Quarter: 2013Q3

REPORT INFORMATION
  Report Type: Spontaneous
  Country: US (occurrence: US)
  Receive Date: 20130715
  Receipt Date: 20130715
  Transmission Date: 20140515
  Serious: Yes (Death)
  Sender: FDA-Public Use
  Company Number: US-PFIZER INC-2013203348

PATIENT
  Age: 66 Year
  Sex: Male

DRUGS (1)
  1. VFEND [Suspect]
     Dosage: 200 MG, 3X/DAY
     Dates: end: 20130523

REACTIONS (1)
  - Disease progression [Fatal]
